FAERS Safety Report 15427107 (Version 8)
Quarter: 2019Q2

REPORT INFORMATION
  Report Type: Spontaneous
  Country: US (occurrence: US)
  Receive Date: 20180925
  Receipt Date: 20190628
  Transmission Date: 20190711
  Serious: Yes (Hospitalization, Other)
  Sender: FDA-Public Use
  Company Number: US-ACTELION-A-US2018-179271

PATIENT
  Age: 49 Year
  Sex: Female
  Weight: 47.17 kg

DRUGS (13)
  1. VELETRI [Suspect]
     Active Substance: EPOPROSTENOL
     Dosage: 56 NG/KG, PER MIN
     Route: 042
  2. REVATIO [Concomitant]
     Active Substance: SILDENAFIL CITRATE
  3. VELETRI [Suspect]
     Active Substance: EPOPROSTENOL
     Indication: PULMONARY HYPERTENSION
     Dosage: 33 NG/KG, PER MIN
     Route: 042
  4. IRON [Concomitant]
     Active Substance: IRON
     Dosage: UNK
  5. OPSUMIT [Suspect]
     Active Substance: MACITENTAN
     Indication: PULMONARY HYPERTENSION
     Dosage: 10 MG, QD
     Route: 048
  6. WARFARIN [Concomitant]
     Active Substance: WARFARIN
     Dosage: UNK
  7. LASIX [Concomitant]
     Active Substance: FUROSEMIDE
     Dosage: UNK
  8. VELETRI [Suspect]
     Active Substance: EPOPROSTENOL
     Dosage: 48 NG/KG, PER MIN
     Route: 042
  9. ELIQUIS [Concomitant]
     Active Substance: APIXABAN
     Dosage: UNK
  10. SYNTHROID [Concomitant]
     Active Substance: LEVOTHYROXINE SODIUM
  11. ALDACTONE [Concomitant]
     Active Substance: SPIRONOLACTONE
     Dosage: UNK
  12. BUMEX [Concomitant]
     Active Substance: BUMETANIDE
     Dosage: UNK
  13. NEURONTIN [Concomitant]
     Active Substance: GABAPENTIN
     Dosage: UNK

REACTIONS (13)
  - Nasopharyngitis [Unknown]
  - Complication associated with device [Unknown]
  - Device issue [Unknown]
  - Oedema peripheral [Recovering/Resolving]
  - Central venous catheterisation [Recovered/Resolved]
  - Device alarm issue [Recovered/Resolved]
  - Cough [Unknown]
  - Cardiac failure congestive [Recovering/Resolving]
  - Device occlusion [Recovered/Resolved]
  - Flushing [Unknown]
  - Dyspnoea [Recovering/Resolving]
  - Device related thrombosis [Recovered/Resolved]
  - Oedema [Unknown]

NARRATIVE: CASE EVENT DATE: 20180916
